FAERS Safety Report 9127539 (Version 1)
Quarter: 2013Q1

REPORT INFORMATION
  Report Type: Spontaneous
  Country: US (occurrence: US)
  Receive Date: 20130228
  Receipt Date: 20130228
  Transmission Date: 20140127
  Serious: Yes (Death, Hospitalization, Other)
  Sender: FDA-Public Use
  Company Number: US-ASTELLAS-2012US012532

PATIENT
  Age: 73 Year
  Sex: Male

DRUGS (1)
  1. PROGRAF [Suspect]
     Indication: RENAL TRANSPLANT
     Dosage: 2 MG AM, 1.5 MG PM
     Route: 048
     Dates: start: 20080919, end: 20121219

REACTIONS (3)
  - Death [Fatal]
  - Renal impairment [Unknown]
  - Lymphoma [Unknown]
